FAERS Safety Report 12089291 (Version 1)
Quarter: 2016Q1

REPORT INFORMATION
  Report Type: Spontaneous
  Country: US (occurrence: None)
  Receive Date: 20160217
  Receipt Date: 20160217
  Transmission Date: 20160526
  Serious: Yes (Other)
  Sender: FDA-Public Use
  Company Number: None

PATIENT
  Age: 51 Year
  Sex: Male
  Weight: 101.61 kg

DRUGS (1)
  1. GLATOPA [Suspect]
     Active Substance: GLATIRAMER ACETATE
     Indication: MULTIPLE SCLEROSIS
     Route: 058
     Dates: start: 20160120, end: 20160212

REACTIONS (7)
  - Weight decreased [None]
  - Malaise [None]
  - Night sweats [None]
  - Product substitution issue [None]
  - Dysgeusia [None]
  - Influenza like illness [None]
  - Eyelid disorder [None]

NARRATIVE: CASE EVENT DATE: 20160210
